FAERS Safety Report 9270417 (Version 1)
Quarter: 2013Q2

REPORT INFORMATION
  Report Type: Spontaneous
  Country: US (occurrence: US)
  Receive Date: 20130503
  Receipt Date: 20130503
  Transmission Date: 20140414
  Serious: Yes (Hospitalization)
  Sender: FDA-Public Use
  Company Number: US-TARO-2013P1001956

PATIENT
  Sex: Female

DRUGS (1)
  1. PHENYTOIN [Suspect]

REACTIONS (2)
  - Toxicity to various agents [Unknown]
  - Suicidal ideation [Unknown]
